FAERS Safety Report 19014120 (Version 1)
Quarter: 2021Q1

REPORT INFORMATION
  Report Type: Spontaneous
  Country: US (occurrence: US)
  Receive Date: 20210316
  Receipt Date: 20210316
  Transmission Date: 20210420
  Serious: Yes (Other)
  Sender: FDA-Public Use
  Company Number: US-GLAXOSMITHKLINE-US2021GSK034327

PATIENT
  Sex: Female

DRUGS (10)
  1. ZANTAC [Suspect]
     Active Substance: RANITIDINE HYDROCHLORIDE
     Dosage: 150 MG PRN
     Route: 065
     Dates: start: 201603, end: 201707
  2. ZANTAC [Suspect]
     Active Substance: RANITIDINE HYDROCHLORIDE
     Indication: DYSPEPSIA
     Dosage: UNK PRN
     Route: 065
     Dates: start: 201603, end: 201707
  3. ZANTAC [Suspect]
     Active Substance: RANITIDINE HYDROCHLORIDE
     Dosage: 150 MG PRN
     Route: 065
     Dates: start: 201603, end: 201707
  4. RANITIDINE CAPSULE [Suspect]
     Active Substance: RANITIDINE
     Indication: DYSPEPSIA
     Dosage: 75 MG PRN
     Route: 065
     Dates: start: 201603, end: 201707
  5. RANITIDINE CAPSULE [Suspect]
     Active Substance: RANITIDINE
     Dosage: 150 MG PRN
     Route: 065
     Dates: start: 201603, end: 201707
  6. ZANTAC [Suspect]
     Active Substance: RANITIDINE HYDROCHLORIDE
     Dosage: 150 MG PRN
     Route: 065
     Dates: start: 201603, end: 201707
  7. RANITIDINE HYDROCHLORIDE. [Suspect]
     Active Substance: RANITIDINE HYDROCHLORIDE
     Indication: DYSPEPSIA
     Dosage: UNK PRN
     Route: 065
     Dates: start: 201603, end: 201707
  8. ZANTAC [Suspect]
     Active Substance: RANITIDINE HYDROCHLORIDE
     Indication: DYSPEPSIA
     Dosage: 75 MG PRN
     Route: 065
     Dates: start: 201603, end: 201707
  9. ZANTAC [Suspect]
     Active Substance: RANITIDINE HYDROCHLORIDE
     Indication: DYSPEPSIA
     Dosage: 75 MG PRN
     Route: 065
     Dates: start: 201603, end: 201707
  10. ZANTAC [Suspect]
     Active Substance: RANITIDINE HYDROCHLORIDE
     Indication: DYSPEPSIA
     Dosage: 75 MG PRN
     Route: 065
     Dates: start: 201603, end: 201707

REACTIONS (3)
  - Hepatic cancer [Unknown]
  - Oesophageal carcinoma [Unknown]
  - Gastric cancer [Unknown]
